FAERS Safety Report 21515538 (Version 1)
Quarter: 2022Q4

REPORT INFORMATION
  Report Type: Spontaneous
  Country: US (occurrence: None)
  Receive Date: 20221027
  Receipt Date: 20221027
  Transmission Date: 20230113
  Serious: Yes (Life-Threatening, Other)
  Sender: FDA-Public Use
  Company Number: None

PATIENT
  Age: 66 Year
  Sex: Female
  Weight: 55.3 kg

DRUGS (6)
  1. OXALIPLATIN [Suspect]
     Active Substance: OXALIPLATIN
     Indication: Pancreatic carcinoma
     Dosage: OTHER FREQUENCY : Q2WEEKS;?
     Route: 041
     Dates: start: 20220519, end: 20220727
  2. OXALIPLATIN [Suspect]
     Active Substance: OXALIPLATIN
     Indication: Pancreatic carcinoma
     Dosage: OTHER FREQUENCY : Q2WEEKS;?
     Route: 041
     Dates: start: 20220519, end: 20220727
  3. DEXAMETHASONE [Concomitant]
     Active Substance: DEXAMETHASONE
     Dates: start: 20220519
  4. PALONOSETRON [Concomitant]
     Active Substance: PALONOSETRON
     Dates: start: 20220519
  5. APREPITANT [Concomitant]
     Active Substance: APREPITANT
     Dates: start: 20220519
  6. IRINOTECAN [Concomitant]
     Active Substance: IRINOTECAN
     Dates: start: 20220519

REACTIONS (3)
  - Dysphagia [None]
  - Oropharyngeal discomfort [None]
  - Infusion related reaction [None]

NARRATIVE: CASE EVENT DATE: 20220727
